FAERS Safety Report 9812390 (Version 1)
Quarter: 2014Q1

REPORT INFORMATION
  Report Type: Report from Study
  Country: PT (occurrence: PT)
  Receive Date: 20140113
  Receipt Date: 20140113
  Transmission Date: 20141002
  Serious: Yes (Hospitalization)
  Sender: FDA-Public Use
  Company Number: PT-BIOGENIDEC-2014BI000421

PATIENT
  Age: 40 Year
  Sex: Female

DRUGS (3)
  1. TYSABRI [Suspect]
     Indication: RELAPSING-REMITTING MULTIPLE SCLEROSIS
     Route: 042
     Dates: start: 20091116, end: 20121210
  2. FINGOLIMOD [Concomitant]
     Dates: start: 20130603
  3. FINGOLIMOD [Concomitant]
     Dates: start: 20131201

REACTIONS (1)
  - Bundle branch block left [Recovered/Resolved]
